FAERS Safety Report 8273995-6 (Version None)
Quarter: 2012Q2

REPORT INFORMATION
  Report Type: 
  Country: None (occurrence: None)
  Receive Date: 20120411
  Receipt Date: 20120404
  Transmission Date: 20120825
  Serious: Yes (Other)
  Sender: FDA-Public Use
  Company Number: US-JNJFOC-20120402649

PATIENT
  Age: 78 Year
  Sex: Female

DRUGS (2)
  1. AMIODARONE HCL [Concomitant]
  2. XARELTO [Suspect]
     Indication: ORTHOPEDIC PROCEDURE
     Dosage: 10 MG ALSO REPORTED AS 15 MG
     Route: 048
     Dates: start: 20120403, end: 20120404

REACTIONS (1)
  - DEEP VEIN THROMBOSIS [None]
